FAERS Safety Report 18243135 (Version 6)
Quarter: 2021Q1

REPORT INFORMATION
  Report Type: Report from Study
  Country: US (occurrence: US)
  Receive Date: 20200908
  Receipt Date: 20210121
  Transmission Date: 20210419
  Serious: Yes (Hospitalization, Other)
  Sender: FDA-Public Use
  Company Number: US-JNJFOC-A-NJ2020-206895

PATIENT
  Age: 67 Year
  Sex: Female
  Weight: 106.24 kg

DRUGS (44)
  1. FLUTICASONE. [Concomitant]
     Active Substance: FLUTICASONE
     Dosage: 2 SPRAYS INTO EACH NOSTRIL BID
     Route: 045
  2. COLACE [Concomitant]
     Active Substance: DOCUSATE SODIUM
     Route: 048
  3. UPTRAVI [Suspect]
     Active Substance: SELEXIPAG
     Route: 048
  4. OXYGEN. [Concomitant]
     Active Substance: OXYGEN
     Route: 045
  5. BISACODYL. [Concomitant]
     Active Substance: BISACODYL
     Route: 065
  6. ONDANSETRON [Concomitant]
     Active Substance: ONDANSETRON
     Indication: ANTIEMETIC SUPPORTIVE CARE
     Dosage: PRN
  7. MYCOPHENOLATE MOFETIL. [Suspect]
     Active Substance: MYCOPHENOLATE MOFETIL
     Route: 048
  8. ACETAMINOPHEN. [Concomitant]
     Active Substance: ACETAMINOPHEN
     Indication: PAIN
     Route: 065
  9. LIDOCAINE. [Concomitant]
     Active Substance: LIDOCAINE
     Route: 061
  10. OPSUMIT [Suspect]
     Active Substance: MACITENTAN
     Indication: PULMONARY ARTERIAL HYPERTENSION
     Dosage: 10 MG, QD
     Route: 048
  11. UPTRAVI [Suspect]
     Active Substance: SELEXIPAG
     Route: 048
  12. TADALAFIL. [Concomitant]
     Active Substance: TADALAFIL
  13. OXYGEN. [Concomitant]
     Active Substance: OXYGEN
     Route: 045
  14. ACETAMINOPHEN. [Concomitant]
     Active Substance: ACETAMINOPHEN
     Dosage: PRN FOR MILD PAIN (PAIN SCALE 1?3/10)
     Route: 048
  15. LIDOCAINE. [Concomitant]
     Active Substance: LIDOCAINE
     Route: 061
  16. NITRO?BID [Concomitant]
     Active Substance: NITROGLYCERIN
     Dosage: 1 INCH APPLIED EVERY 6 HOUES
     Route: 061
  17. MIRALAX [Concomitant]
     Active Substance: POLYETHYLENE GLYCOL 3350
     Indication: CONSTIPATION
     Dosage: PRN
  18. PANTOPRAZOLE [Concomitant]
     Active Substance: PANTOPRAZOLE
     Dosage: DELAYED RELEASE
     Route: 048
  19. FERROUS SULFATE. [Concomitant]
     Active Substance: FERROUS SULFATE
     Dosage: WITH BREAKFAST
     Route: 048
  20. HYDROCORTISONE. [Concomitant]
     Active Substance: HYDROCORTISONE
     Route: 061
  21. SPIRONOLACTONE. [Concomitant]
     Active Substance: SPIRONOLACTONE
     Route: 048
  22. SIMETHICONE (DIMETHICONE) [Concomitant]
     Active Substance: DIMETHICONE
     Indication: FLATULENCE
  23. BREO ELLIPTA [Concomitant]
     Active Substance: FLUTICASONE FUROATE\VILANTEROL TRIFENATATE
     Dosage: 100?25 MCG
  24. SALINE NASAL MIST [Concomitant]
     Route: 045
  25. UPTRAVI [Suspect]
     Active Substance: SELEXIPAG
     Dosage: 800 MCG, BID
     Route: 048
  26. UPTRAVI [Suspect]
     Active Substance: SELEXIPAG
     Route: 048
  27. ACETAMINOPHEN. [Concomitant]
     Active Substance: ACETAMINOPHEN
     Route: 048
  28. METOCLOPRAMIDE. [Concomitant]
     Active Substance: METOCLOPRAMIDE
     Dosage: BEFORE MEALS
  29. SENNA [SENNA ALEXANDRINA] [Concomitant]
     Active Substance: SENNA LEAF
     Indication: CONSTIPATION
     Dosage: 1 TABLET AT BEDTIME PRN
  30. FUROSEMIDE. [Concomitant]
     Active Substance: FUROSEMIDE
     Route: 048
  31. MELATONIN [Concomitant]
     Active Substance: MELATONIN
     Dosage: AT BEDTIME
     Route: 048
  32. UPTRAVI [Suspect]
     Active Substance: SELEXIPAG
     Indication: PULMONARY ARTERIAL HYPERTENSION
     Dosage: 200 MCG, BID
     Route: 048
     Dates: start: 20200624
  33. UPTRAVI [Suspect]
     Active Substance: SELEXIPAG
     Route: 048
     Dates: start: 20200821
  34. UPTRAVI [Suspect]
     Active Substance: SELEXIPAG
     Route: 048
     Dates: start: 20200814
  35. ADCIRCA [Suspect]
     Active Substance: TADALAFIL
     Indication: PRODUCT USED FOR UNKNOWN INDICATION
     Route: 065
  36. BISACODYL. [Concomitant]
     Active Substance: BISACODYL
     Indication: CONSTIPATION
     Route: 048
  37. CHOLECALCIFEROL [Concomitant]
     Active Substance: CHOLECALCIFEROL
     Dosage: 5000 UNITS EVERY OTHER DAY
     Route: 048
  38. AZELASTINE. [Concomitant]
     Active Substance: AZELASTINE HYDROCHLORIDE
     Dosage: 137 MCG/INH 2 SPRAYS BID
     Route: 045
  39. MYCOPHENOLATE MOFETIL. [Suspect]
     Active Substance: MYCOPHENOLATE MOFETIL
     Route: 065
  40. MYCOPHENOLATE MOFETIL. [Suspect]
     Active Substance: MYCOPHENOLATE MOFETIL
     Route: 048
  41. OXYGEN. [Concomitant]
     Active Substance: OXYGEN
     Dosage: (BASELINE 5?7 LPM)
  42. OXYGEN. [Concomitant]
     Active Substance: OXYGEN
     Dosage: WITH HER BIPAP
  43. OXYGEN. [Concomitant]
     Active Substance: OXYGEN
     Dates: start: 20200811
  44. SPIRONOLACTONE. [Concomitant]
     Active Substance: SPIRONOLACTONE
     Route: 048

REACTIONS (42)
  - Neuropathy peripheral [Recovering/Resolving]
  - Abdominal discomfort [Unknown]
  - Nephrolithiasis [Unknown]
  - Fluid retention [Unknown]
  - Asthenia [Unknown]
  - Cough [Unknown]
  - Dyspnoea exertional [Recovering/Resolving]
  - Thyroid disorder [Unknown]
  - Pain [Unknown]
  - Flushing [Unknown]
  - Product dose omission issue [Unknown]
  - Anaemia [Unknown]
  - Sleep disorder [Unknown]
  - Haemorrhoids [Unknown]
  - Hypoaesthesia [Unknown]
  - Vasodilatation [Unknown]
  - Oedema peripheral [Unknown]
  - Fatigue [Unknown]
  - Temperature intolerance [Unknown]
  - Hydronephrosis [Unknown]
  - Scleroderma [Unknown]
  - Ulcer haemorrhage [Unknown]
  - Haemoglobin decreased [Unknown]
  - Gastric ulcer [Unknown]
  - Chronic kidney disease [Unknown]
  - Tricuspid valve incompetence [Unknown]
  - Constipation [Unknown]
  - Right ventricular failure [Unknown]
  - Diarrhoea [Unknown]
  - Wheezing [Unknown]
  - Nausea [Unknown]
  - Adverse event [Unknown]
  - Surgery [Unknown]
  - Headache [Unknown]
  - Faeces discoloured [Unknown]
  - Decreased appetite [Unknown]
  - Abdominal distension [Unknown]
  - Pulmonary hypertension [Unknown]
  - Abdominal distension [Unknown]
  - Dyspnoea [Unknown]
  - Weight decreased [Unknown]
  - Dizziness [Unknown]

NARRATIVE: CASE EVENT DATE: 202006
